FAERS Safety Report 14450463 (Version 5)
Quarter: 2018Q2

REPORT INFORMATION
  Report Type: Spontaneous
  Country: DE (occurrence: DE)
  Receive Date: 20180129
  Receipt Date: 20180507
  Transmission Date: 20180711
  Serious: Yes (Hospitalization, Other)
  Sender: FDA-Public Use
  Company Number: DE-AMGEN-DEUSP2018011559

PATIENT
  Sex: Female

DRUGS (33)
  1. RITUXIMAB. [Suspect]
     Active Substance: RITUXIMAB
     Indication: B-CELL LYMPHOMA
     Dosage: 725 MG, QD
     Route: 042
     Dates: start: 20171228, end: 20171228
  2. PREDNISONE. [Suspect]
     Active Substance: PREDNISONE
     Dosage: 100 MG, UNK
     Route: 048
     Dates: start: 20180312, end: 20180315
  3. AMLODIPINE [Concomitant]
     Active Substance: AMLODIPINE BESYLATE
     Indication: HYPERTENSION
     Dosage: 5 MG, QD
     Route: 048
  4. PANTOPRAZOLE SODIUM. [Concomitant]
     Active Substance: PANTOPRAZOLE SODIUM
     Indication: PROPHYLAXIS
     Dosage: 40 MG, QD
     Route: 048
     Dates: start: 20171209
  5. RAMIPRIL. [Concomitant]
     Active Substance: RAMIPRIL
     Indication: HYPERTENSION
     Dosage: 2.5 MG, QD
     Dates: start: 20180414
  6. SULFAMETHOXAZOLE W/TRIMETHOPRIM [Concomitant]
     Active Substance: SULFAMETHOXAZOLE\TRIMETHOPRIM
     Indication: INFECTION
     Dosage: UNK, BID (800/160 MG SA+SU)
     Route: 048
     Dates: start: 20171216
  7. BROMAZEPAM [Concomitant]
     Active Substance: BROMAZEPAM
     Indication: INSOMNIA
     Dosage: UNK (0-0-0-0,5)
     Route: 048
  8. AMPHOTERICIN B. [Concomitant]
     Active Substance: AMPHOTERICIN B
     Dosage: 1 ML, QID
     Route: 048
     Dates: start: 20171212
  9. FEBUXOSTAT. [Concomitant]
     Active Substance: FEBUXOSTAT
     Dosage: 800 MG, QD
     Route: 048
  10. HYDROCORTISONE. [Concomitant]
     Active Substance: HYDROCORTISONE
     Dosage: 10 MG, TID
     Dates: start: 20180413
  11. PEGFILGRASTIM [Suspect]
     Active Substance: PEGFILGRASTIM
     Dosage: 6 MG, QD
     Route: 058
     Dates: start: 20180315, end: 20180315
  12. CYCLOPHOSPHAMIDE. [Suspect]
     Active Substance: CYCLOPHOSPHAMIDE
     Dosage: 1050 MG, QD
     Route: 042
     Dates: start: 20180312, end: 20180312
  13. DOXORUBICINE [Suspect]
     Active Substance: DOXORUBICIN
     Indication: B-CELL LYMPHOMA
     Dosage: 97 MG, QD
     Route: 042
     Dates: start: 20171229, end: 20171229
  14. RITUXIMAB. [Suspect]
     Active Substance: RITUXIMAB
     Dosage: 700 MG, QD
     Route: 042
     Dates: start: 20180326, end: 20180326
  15. VINCRISTINE [Suspect]
     Active Substance: VINCRISTINE
     Indication: B-CELL LYMPHOMA
     Dosage: 3.22 MG, QD
     Route: 042
     Dates: start: 20171229, end: 20171229
  16. PREDNISONE. [Suspect]
     Active Substance: PREDNISONE
     Indication: B-CELL LYMPHOMA
     Dosage: 100 MG, UNK
     Route: 048
     Dates: start: 20171229, end: 20180102
  17. NEBIVOLOL. [Concomitant]
     Active Substance: NEBIVOLOL
     Dosage: 5 MG, QD
     Dates: start: 20180413
  18. BISACODYL. [Concomitant]
     Active Substance: BISACODYL
     Indication: CONSTIPATION
     Dosage: 10 GTT, QD
     Route: 048
     Dates: start: 20171208
  19. NADROPARIN CALCIUM [Concomitant]
     Active Substance: NADROPARIN CALCIUM
     Indication: THROMBOSIS PROPHYLAXIS
     Dosage: 3 ML, QD
     Route: 058
     Dates: start: 20171129, end: 20171213
  20. ALLOPURINOL. [Concomitant]
     Active Substance: ALLOPURINOL
     Dosage: 300 MG, QD
     Route: 048
     Dates: start: 20171211, end: 20180110
  21. ENOXAPARIN SODIUM. [Concomitant]
     Active Substance: ENOXAPARIN SODIUM
     Indication: PROPHYLAXIS
     Dosage: 40 MG, QD
     Route: 058
     Dates: start: 20180403
  22. TRAMADOL. [Concomitant]
     Active Substance: TRAMADOL
     Indication: PAIN
     Dosage: 100 MG, UNK
     Route: 048
     Dates: start: 20180403
  23. DOXORUBICINE [Suspect]
     Active Substance: DOXORUBICIN
     Dosage: 70 MG, QD
     Route: 042
     Dates: start: 20180312, end: 20180312
  24. ACICLOVIR [Concomitant]
     Active Substance: ACYCLOVIR
     Dosage: 400 MG, QID
     Route: 048
     Dates: start: 20171201
  25. PEGFILGRASTIM [Suspect]
     Active Substance: PEGFILGRASTIM
     Indication: B-CELL LYMPHOMA
     Dosage: 6 MG, QD
     Route: 058
     Dates: start: 20171214, end: 20171214
  26. CYCLOPHOSPHAMIDE. [Suspect]
     Active Substance: CYCLOPHOSPHAMIDE
     Indication: B-CELL LYMPHOMA
     Dosage: 1450 MG, QD
     Route: 042
     Dates: start: 20171229, end: 20171229
  27. NEBIVOLOL. [Concomitant]
     Active Substance: NEBIVOLOL
     Indication: HYPERTENSION
     Dosage: 5 MG, QD
     Route: 048
  28. COLECALCIFEROL [Concomitant]
     Active Substance: CHOLECALCIFEROL
     Dosage: 20000 IU, QWK
     Route: 048
     Dates: start: 20171202
  29. LEVOFLOXACIN. [Concomitant]
     Active Substance: LEVOFLOXACIN
     Dosage: 500 MG, QD
     Route: 048
     Dates: start: 20180110, end: 20180110
  30. HYDROMORPHONE [Concomitant]
     Active Substance: HYDROMORPHONE
     Indication: PAIN
     Dosage: 1.3 MG, UNK
     Route: 048
     Dates: start: 20180403
  31. METAMIZOL NATRIUM [Concomitant]
     Indication: PAIN
     Dosage: UNK UNK, BID
     Route: 048
     Dates: start: 20180403
  32. RITUXIMAB. [Suspect]
     Active Substance: RITUXIMAB
     Dosage: 700 MG, QD
     Route: 042
     Dates: start: 20180409, end: 20180409
  33. VINCRISTINE [Suspect]
     Active Substance: VINCRISTINE
     Dosage: 3.21 MG, QD
     Route: 042
     Dates: start: 20180119, end: 20180119

REACTIONS (3)
  - Pulmonary embolism [Recovering/Resolving]
  - Bronchitis [Recovered/Resolved]
  - Lung infection [Unknown]

NARRATIVE: CASE EVENT DATE: 20180111
